FAERS Safety Report 5831634-5 (Version None)
Quarter: 2008Q3

REPORT INFORMATION
  Report Type: 
  Country: None (occurrence: None)
  Receive Date: 20080730
  Receipt Date: 20080716
  Transmission Date: 20090109
  Serious: Yes (Life-Threatening, Hospitalization, Disabling)
  Sender: FDA-Public Use
  Company Number: 2008AL008329

PATIENT
  Age: 53 Year
  Sex: Male
  Weight: 102.0593 kg

DRUGS (2)
  1. DIGOXIN [Suspect]
     Indication: ARRHYTHMIA
     Dosage: 0.25MG DAILY PO
     Route: 048
     Dates: start: 20070802, end: 20080311
  2. UNSPECIFIED SEIZURE MEDICATION [Concomitant]

REACTIONS (3)
  - CONVULSION [None]
  - JOINT INJURY [None]
  - LOSS OF EMPLOYMENT [None]
